FAERS Safety Report 4370754-1 (Version None)
Quarter: 2004Q2

REPORT INFORMATION
  Report Type: 
  Country: None (occurrence: None)
  Receive Date: 20040601
  Receipt Date: 20040518
  Transmission Date: 20050107
  Serious: Yes (Hospitalization, Other)
  Sender: FDA-Public Use
  Company Number: DEU-2004-0000823

PATIENT
  Age: 43 Year
  Sex: Female
  Weight: 65 kg

DRUGS (4)
  1. MORPHINE SULFATE [Suspect]
     Indication: PAIN
     Dosage: 6.5 MG, DAILY, INTRATHECAL
     Route: 037
     Dates: start: 20001101, end: 20040503
  2. BUCAIN (BUPIVACAINE HYDROCHLORIDE) [Suspect]
  3. RIAMHEXAL (TRIAMCINOLONE ACETONIDE) [Concomitant]
  4. KATADOLON (FLUPIRTINE MALEATE) [Concomitant]

REACTIONS (8)
  - ANGIONEUROTIC OEDEMA [None]
  - DRUG HYPERSENSITIVITY [None]
  - DRUG INTOLERANCE [None]
  - DYSAESTHESIA [None]
  - DYSPNOEA [None]
  - EYE IRRITATION [None]
  - ORAL DYSAESTHESIA [None]
  - PERFORMANCE STATUS DECREASED [None]
